FAERS Safety Report 6287860-7 (Version None)
Quarter: 2009Q3

REPORT INFORMATION
  Report Type: 
  Country: None (occurrence: None)
  Receive Date: 20090729
  Receipt Date: 20090722
  Transmission Date: 20100115
  Serious: Yes (Hospitalization)
  Sender: FDA-Public Use
  Company Number: FR-WYE-G04097409

PATIENT
  Sex: Female

DRUGS (4)
  1. EFFEXOR [Suspect]
     Indication: DEPRESSION
     Route: 048
     Dates: start: 20090528, end: 20090609
  2. COAPROVEL [Concomitant]
     Route: 048
  3. XANAX [Concomitant]
     Route: 048
  4. TRIVASTAL [Concomitant]
     Route: 048

REACTIONS (5)
  - CEREBELLAR SYNDROME [None]
  - EXTRAPYRAMIDAL DISORDER [None]
  - FALL [None]
  - GENERAL PHYSICAL HEALTH DETERIORATION [None]
  - HYPONATRAEMIA [None]
